FAERS Safety Report 11564527 (Version 1)
Quarter: 2015Q3

REPORT INFORMATION
  Report Type: Spontaneous
  Country: US (occurrence: US)
  Receive Date: 20150916
  Receipt Date: 20150916
  Transmission Date: 20151125
  Serious: No
  Sender: FDA-Public Use
  Company Number: US-ELI_LILLY_AND_COMPANY-US200903004980

PATIENT
  Age: 55 Year
  Sex: Female

DRUGS (11)
  1. FLAXSEED [Concomitant]
     Active Substance: FLAX SEED
     Dates: end: 20090309
  2. ELMIRON [Concomitant]
     Active Substance: PENTOSAN POLYSULFATE SODIUM
     Dates: end: 20090309
  3. ATENOLOL. [Concomitant]
     Active Substance: ATENOLOL
     Indication: SUPRAVENTRICULAR TACHYCARDIA
     Dosage: LOW DOSE
     Dates: end: 20090309
  4. MULTIVITAMIN [Concomitant]
     Active Substance: VITAMINS
     Dates: end: 20090309
  5. CALCIUM [Concomitant]
     Active Substance: CALCIUM
     Dates: end: 20090309
  6. VITAMIN D [Concomitant]
     Active Substance: CHOLECALCIFEROL
     Dosage: UNK, UNK
  7. ADDERALL [Concomitant]
     Active Substance: AMPHETAMINE ASPARTATE\AMPHETAMINE SULFATE\DEXTROAMPHETAMINE SACCHARATE\DEXTROAMPHETAMINE SULFATE
     Indication: ASTHENIA
     Dosage: UNK, EACH MORNING
     Dates: end: 20090309
  8. VITAMIN D [Concomitant]
     Active Substance: CHOLECALCIFEROL
     Dosage: STARTING ON A HIGH DOSE
     Dates: start: 20090310
  9. XANAX [Concomitant]
     Active Substance: ALPRAZOLAM
     Indication: SLEEP DISORDER
     Dates: end: 20090309
  10. GINKGO BILOBA [Concomitant]
     Active Substance: GINKGO
     Dates: end: 20090309
  11. FORTEO [Suspect]
     Active Substance: TERIPARATIDE
     Dosage: UNK, UNK
     Dates: start: 200809, end: 20090318

REACTIONS (9)
  - Confusional state [Recovering/Resolving]
  - Pain [Recovered/Resolved]
  - Gait disturbance [Recovering/Resolving]
  - Palpitations [Recovered/Resolved]
  - Hypoaesthesia [Recovering/Resolving]
  - Multiple sclerosis [Recovering/Resolving]
  - Vitamin D decreased [Unknown]
  - Back pain [Recovered/Resolved]
  - Musculoskeletal stiffness [Recovering/Resolving]

NARRATIVE: CASE EVENT DATE: 20090309
